FAERS Safety Report 24741777 (Version 1)
Quarter: 2024Q4

REPORT INFORMATION
  Report Type: Spontaneous
  Country: JP (occurrence: JP)
  Receive Date: 20241217
  Receipt Date: 20241217
  Transmission Date: 20250114
  Serious: Yes (Hospitalization)
  Sender: ROCHE
  Company Number: JP-CHUGAI-2024034678

PATIENT
  Age: 4 Decade
  Sex: Female

DRUGS (2)
  1. ENSPRYNG [Suspect]
     Active Substance: SATRALIZUMAB-MWGE
     Indication: Neuromyelitis optica spectrum disorder
     Route: 050
  2. ENSPRYNG [Suspect]
     Active Substance: SATRALIZUMAB-MWGE
     Dosage: RESUME DATE: -NOV-2024
     Route: 050

REACTIONS (3)
  - Maternal exposure during pregnancy [Unknown]
  - Neuromyelitis optica spectrum disorder [Unknown]
  - Maternal exposure before pregnancy [Unknown]

NARRATIVE: CASE EVENT DATE: 20241204
